FAERS Safety Report 9725380 (Version 1)
Quarter: 2013Q4

REPORT INFORMATION
  Report Type: Spontaneous
  Country: US (occurrence: None)
  Receive Date: 20131129
  Receipt Date: 20131129
  Transmission Date: 20140711
  Serious: Yes (Other)
  Sender: FDA-Public Use
  Company Number: 2013-US-003689

PATIENT
  Age: 37 Year
  Sex: Female

DRUGS (5)
  1. XYREM (SOLUTION OXYBATE) ORAL SOLUTION, 500MG/ML [Suspect]
     Indication: NARCOLEPSY
     Route: 048
     Dates: start: 200306
  2. XYREM (SOLUTION OXYBATE) ORAL SOLUTION, 500MG/ML [Suspect]
     Indication: CATAPLEXY
     Route: 048
     Dates: start: 200306
  3. VITAMINS [Concomitant]
  4. SINGULAIR [Concomitant]
  5. ESTRADIOL (ESTRADIOL) (GEL) [Concomitant]

REACTIONS (5)
  - Obesity surgery [None]
  - Faecal incontinence [None]
  - Tinnitus [None]
  - Cataplexy [None]
  - Confusional state [None]
